FAERS Safety Report 8968300 (Version 2)
Quarter: 2013Q2

REPORT INFORMATION
  Report Type: Spontaneous
  Country: US (occurrence: US)
  Receive Date: 20121217
  Receipt Date: 20130611
  Transmission Date: 20140414
  Serious: Yes (Other)
  Sender: FDA-Public Use
  Company Number: CHPA2012US023074

PATIENT
  Sex: Female

DRUGS (1)
  1. EXCEDRIN MIGRAINE [Suspect]
     Indication: HEADACHE
     Dosage: UNK, ONCE/SINGLE
     Route: 048

REACTIONS (3)
  - Temporal arteritis [Unknown]
  - Arthritis [Unknown]
  - Drug ineffective [Unknown]
